FAERS Safety Report 7110599-2 (Version None)
Quarter: 2010Q4

REPORT INFORMATION
  Report Type: 
  Country: None (occurrence: None)
  Receive Date: 20101118
  Receipt Date: 20101115
  Transmission Date: 20110411
  Serious: Yes (Death)
  Sender: FDA-Public Use
  Company Number: US-ASTRAZENECA-2010SE54311

PATIENT
  Age: 92 Year
  Sex: Female

DRUGS (2)
  1. MEPIVACAINE HCL [Suspect]
     Indication: HIP FRACTURE
  2. MIDAZOLAM HCL [Concomitant]
     Indication: SEDATION

REACTIONS (2)
  - ACCIDENTAL OVERDOSE [None]
  - CARDIAC ARREST [None]
